FAERS Safety Report 7973730-2 (Version None)
Quarter: 2011Q4

REPORT INFORMATION
  Report Type: 
  Country: None (occurrence: None)
  Receive Date: 20111213
  Receipt Date: 20111213
  Transmission Date: 20120403
  Serious: Yes (Disabling)
  Sender: FDA-Public Use
  Company Number: None

PATIENT
  Sex: Female
  Weight: 58.967 kg

DRUGS (2)
  1. CIPROFLOXACIN [Suspect]
     Indication: NEPHROLITHIASIS
     Dosage: IV IN HOSPITAL CONTINUOUS
     Route: 041
     Dates: start: 20111010, end: 20111015
  2. CIPROFLOXACIN [Suspect]
     Indication: KIDNEY INFECTION
     Dosage: IV IN HOSPITAL CONTINUOUS
     Route: 041
     Dates: start: 20111010, end: 20111015

REACTIONS (5)
  - TENDONITIS [None]
  - TENDON RUPTURE [None]
  - IMPAIRED WORK ABILITY [None]
  - MUSCULOSKELETAL PAIN [None]
  - ACTIVITIES OF DAILY LIVING IMPAIRED [None]
